FAERS Safety Report 12162495 (Version 2)
Quarter: 2016Q3

REPORT INFORMATION
  Report Type: Report from Study
  Country: FR (occurrence: FR)
  Receive Date: 20160309
  Receipt Date: 20160919
  Transmission Date: 20161109
  Serious: Yes (Hospitalization, Other)
  Sender: FDA-Public Use
  Company Number: FR-ASTELLAS-2016US008234

PATIENT
  Age: 50 Year
  Sex: Female

DRUGS (23)
  1. BISOPROLOL [Concomitant]
     Active Substance: BISOPROLOL
     Route: 048
     Dates: start: 20150306
  2. CAPTOPRIL. [Concomitant]
     Active Substance: CAPTOPRIL
     Route: 048
     Dates: start: 20150619
  3. TACROLIMUS. [Suspect]
     Active Substance: TACROLIMUS
     Dosage: 21 MG, DAILY
     Route: 065
     Dates: start: 20150207, end: 20150402
  4. CERTICAN [Suspect]
     Active Substance: EVEROLIMUS
     Indication: IMMUNOSUPPRESSION
     Route: 048
     Dates: start: 20150619, end: 20150722
  5. CAPTOPRIL. [Concomitant]
     Active Substance: CAPTOPRIL
     Route: 048
     Dates: start: 20150605
  6. BISOPROLOL [Concomitant]
     Active Substance: BISOPROLOL
     Indication: HYPERTENSION
     Dosage: 2.5 MG, DAILY
     Route: 065
     Dates: start: 201501, end: 201503
  7. INEXIUM                            /01479302/ [Concomitant]
     Active Substance: ESOMEPRAZOLE MAGNESIUM
     Indication: PROPHYLAXIS
     Route: 048
     Dates: start: 20150116
  8. BACTRIM [Concomitant]
     Active Substance: SULFAMETHOXAZOLE\TRIMETHOPRIM
     Indication: PROPHYLAXIS
     Route: 048
     Dates: start: 20150119
  9. TACROLIMUS. [Suspect]
     Active Substance: TACROLIMUS
     Dosage: 15 MG, DAILY
     Route: 065
     Dates: start: 20150417, end: 20150619
  10. CERTICAN [Suspect]
     Active Substance: EVEROLIMUS
     Route: 048
     Dates: start: 20151028
  11. CAPTOPRIL. [Concomitant]
     Active Substance: CAPTOPRIL
     Indication: HYPERTENSION
     Route: 065
     Dates: start: 201502, end: 201503
  12. MYCOPHENOLATE MOFETIL. [Concomitant]
     Active Substance: MYCOPHENOLATE MOFETIL
     Indication: IMMUNOSUPPRESSANT DRUG THERAPY
     Dosage: 2000 MG, DAILY
     Route: 065
     Dates: start: 201501, end: 201504
  13. TACROLIMUS. [Suspect]
     Active Substance: TACROLIMUS
     Indication: IMMUNOSUPPRESSION
     Dosage: 19 MG, DAILY DOSE
     Route: 065
     Dates: start: 20150119
  14. CAPTOPRIL. [Concomitant]
     Active Substance: CAPTOPRIL
     Route: 065
     Dates: start: 201503, end: 201506
  15. ZELTREX [Concomitant]
     Active Substance: VALACYCLOVIR HYDROCHLORIDE
     Indication: PROPHYLAXIS
     Route: 048
     Dates: start: 20150115
  16. TACROLIMUS. [Suspect]
     Active Substance: TACROLIMUS
     Dosage: 20 MG, DAILY
     Route: 065
     Dates: start: 20150403, end: 20150417
  17. TACROLIMUS. [Suspect]
     Active Substance: TACROLIMUS
     Route: 048
     Dates: start: 20150620, end: 20150709
  18. TACROLIMUS. [Suspect]
     Active Substance: TACROLIMUS
     Dosage: 5 MG, DAILY
     Route: 065
     Dates: start: 20160107
  19. CORTANCYL [Suspect]
     Active Substance: PREDNISONE
     Route: 048
     Dates: start: 20150930
  20. BISOPROLOL [Concomitant]
     Active Substance: BISOPROLOL
     Dosage: UNK UNK, UNKNOWN FREQ.
     Route: 065
  21. TACROLIMUS. [Suspect]
     Active Substance: TACROLIMUS
     Route: 048
     Dates: start: 20150710, end: 20160106
  22. CORTANCYL [Suspect]
     Active Substance: PREDNISONE
     Indication: IMMUNOSUPPRESSION
     Route: 048
     Dates: start: 20150417
  23. CAPTOPRIL. [Concomitant]
     Active Substance: CAPTOPRIL
     Dosage: 25 MG, DAILY
     Route: 065
     Dates: start: 201503, end: 201503

REACTIONS (6)
  - Tachycardia [Recovered/Resolved]
  - Hypogammaglobulinaemia [Recovered/Resolved]
  - Pyelonephritis [Recovered/Resolved]
  - Thrombocytopenia [Recovered/Resolved]
  - Pyelonephritis [Recovered/Resolved]
  - Hepatic function abnormal [Recovering/Resolving]

NARRATIVE: CASE EVENT DATE: 20150710
